FAERS Safety Report 13681595 (Version 1)
Quarter: 2017Q2

REPORT INFORMATION
  Report Type: Spontaneous
  Country: US (occurrence: US)
  Receive Date: 20170623
  Receipt Date: 20170623
  Transmission Date: 20170830
  Serious: No
  Sender: FDA-Public Use
  Company Number: US-IPSEN BIOPHARMACEUTICALS, INC.-2016-02311

PATIENT
  Sex: Female

DRUGS (2)
  1. DYSPORT [Suspect]
     Active Substance: ABOBOTULINUMTOXINA
     Indication: SKIN WRINKLING
     Dosage: 60 UNITS
     Route: 065
     Dates: start: 20160209, end: 20160209
  2. DYSPORT [Suspect]
     Active Substance: ABOBOTULINUMTOXINA
     Dosage: 60 UNITS
     Route: 065
     Dates: start: 20160224, end: 20160224

REACTIONS (5)
  - Incorrect route of drug administration [Unknown]
  - Inappropriate schedule of drug administration [Unknown]
  - Drug ineffective [Unknown]
  - Overdose [Unknown]
  - Product preparation error [Unknown]
